FAERS Safety Report 21723281 (Version 1)
Quarter: 2022Q4

REPORT INFORMATION
  Report Type: Spontaneous
  Country: US (occurrence: None)
  Receive Date: 20221212
  Receipt Date: 20221212
  Transmission Date: 20230112
  Serious: Yes (unspecified)
  Sender: FDA-Public Use
  Company Number: None

PATIENT
  Age: 51 Year
  Sex: Male

DRUGS (1)
  1. SKYRIZI [Suspect]
     Active Substance: RISANKIZUMAB-RZAA
     Indication: Squamous cell carcinoma of skin
     Dosage: OTHER FREQUENCY : SUBQ  Q 90 DAYS;?
     Route: 058
     Dates: start: 20220601

REACTIONS (1)
  - Keratoacanthoma [None]

NARRATIVE: CASE EVENT DATE: 20221212
